FAERS Safety Report 13031143 (Version 2)
Quarter: 2016Q4

REPORT INFORMATION
  Report Type: Report from Study
  Country: IT (occurrence: IT)
  Receive Date: 20161215
  Receipt Date: 20161228
  Transmission Date: 20170207
  Serious: Yes (Hospitalization)
  Sender: FDA-Public Use
  Company Number: IT-TEVA-718531ACC

PATIENT
  Age: 52 Year
  Sex: Female

DRUGS (5)
  1. ZOLOFT [Suspect]
     Active Substance: SERTRALINE HYDROCHLORIDE
     Indication: DRUG ABUSE
     Dosage: 7 DOSAGE FORMS DAILY;
     Route: 048
     Dates: start: 20140420, end: 20140420
  2. RISPERDAL [Suspect]
     Active Substance: RISPERIDONE
     Indication: DRUG ABUSE
     Dosage: 10 DOSAGE FORMS DAILY;
     Route: 048
     Dates: start: 20140420, end: 20140420
  3. XANAX [Suspect]
     Active Substance: ALPRAZOLAM
     Indication: DRUG ABUSE
     Dosage: 10 DOSAGE FORMS DAILY;
     Route: 048
     Dates: start: 20140420, end: 20140420
  4. TICLOPIDINA [Suspect]
     Active Substance: TICLOPIDINE
     Indication: DRUG ABUSE
     Dosage: 28 DOSAGE FORMS DAILY;
     Route: 048
     Dates: start: 20140420, end: 20140420
  5. FLUNOX [Suspect]
     Active Substance: FLURAZEPAM HYDROCHLORIDE
     Indication: DRUG ABUSE
     Dosage: 40 DOSAGE FORMS DAILY;
     Route: 048
     Dates: start: 20140420, end: 20140420

REACTIONS (7)
  - Transaminases increased [Recovering/Resolving]
  - Anxiety [Recovering/Resolving]
  - Drug abuse [Recovering/Resolving]
  - Troponin increased [Recovering/Resolving]
  - Suicide attempt [Recovering/Resolving]
  - Blood creatine phosphokinase increased [Recovering/Resolving]
  - Suicidal behaviour [Recovering/Resolving]

NARRATIVE: CASE EVENT DATE: 20140421
